FAERS Safety Report 23410152 (Version 2)
Quarter: 2024Q1

REPORT INFORMATION
  Report Type: Spontaneous
  Country: JP (occurrence: JP)
  Receive Date: 20240117
  Receipt Date: 20240216
  Transmission Date: 20240410
  Serious: Yes (Hospitalization, Other)
  Sender: FDA-Public Use
  Company Number: JP-TAKEDA-2023TJP015337

PATIENT
  Age: 9 Decade
  Sex: Male

DRUGS (2)
  1. CABOMETYX [Suspect]
     Active Substance: CABOZANTINIB S-MALATE
     Indication: Renal cell carcinoma
     Dosage: 40 MG, QD
     Route: 048
     Dates: start: 20231019
  2. CABOMETYX [Suspect]
     Active Substance: CABOZANTINIB S-MALATE
     Dosage: 20 MG, QD
     Route: 048

REACTIONS (7)
  - Fracture [Unknown]
  - Diabetic gangrene [Unknown]
  - Hypertension [Unknown]
  - Urinary occult blood positive [Unknown]
  - Platelet count decreased [Unknown]
  - Proteinuria [Unknown]
  - Diarrhoea [Unknown]
